FAERS Safety Report 18625487 (Version 1)
Quarter: 2020Q4

REPORT INFORMATION
  Report Type: Spontaneous
  Country: US (occurrence: US)
  Receive Date: 20201216
  Receipt Date: 20201216
  Transmission Date: 20210114
  Serious: Yes (Other)
  Sender: FDA-Public Use
  Company Number: US-GILEAD-2020-0509152

PATIENT
  Age: 76 Year
  Sex: Male
  Weight: 88.9 kg

DRUGS (1)
  1. YESCARTA [Suspect]
     Active Substance: AXICABTAGENE CILOLEUCEL
     Indication: DIFFUSE LARGE B-CELL LYMPHOMA
     Dosage: 1 DOSAGE FORM, ONCE
     Route: 042
     Dates: start: 20200917, end: 20200917

REACTIONS (9)
  - Depressed level of consciousness [Unknown]
  - Tremor [Unknown]
  - Pyrexia [Unknown]
  - Alanine aminotransferase abnormal [Unknown]
  - Cytokine release syndrome [Recovered/Resolved]
  - Agitation [Unknown]
  - Encephalopathy [Unknown]
  - Aspartate aminotransferase increased [Unknown]
  - Confusional state [Unknown]

NARRATIVE: CASE EVENT DATE: 20200918
